FAERS Safety Report 5968192-0 (Version None)
Quarter: 2008Q4

REPORT INFORMATION
  Report Type: 
  Country: None (occurrence: None)
  Receive Date: 20081126
  Receipt Date: 20081117
  Transmission Date: 20090506
  Serious: Yes (Hospitalization)
  Sender: FDA-Public Use
  Company Number: A0365748A

PATIENT
  Age: 52 Year
  Sex: Male
  Weight: 99.1 kg

DRUGS (4)
  1. AVANDIA [Suspect]
     Route: 048
     Dates: start: 20011101, end: 20070429
  2. STARLIX [Concomitant]
     Dosage: 120MG TWICE PER DAY
     Route: 048
     Dates: start: 20011101
  3. LIPITOR [Concomitant]
     Dosage: 80MG PER DAY
     Route: 048
  4. NORVASC [Concomitant]
     Dosage: 5MG PER DAY
     Route: 048

REACTIONS (5)
  - CARDIAC FAILURE CONGESTIVE [None]
  - CORONARY ARTERY DISEASE [None]
  - HYPERLIPIDAEMIA [None]
  - MYOCARDIAL INFARCTION [None]
  - WEIGHT INCREASED [None]
